FAERS Safety Report 5457959-3 (Version None)
Quarter: 2007Q3

REPORT INFORMATION
  Report Type: 
  Country: None (occurrence: None)
  Receive Date: 20070917
  Receipt Date: 20070904
  Transmission Date: 20080115
  Serious: No
  Sender: FDA-Public Use
  Company Number: US021192

PATIENT
  Age: 45 Year
  Sex: Female

DRUGS (1)
  1. FENTORA [Suspect]
     Dosage: BUCCAL
     Route: 002

REACTIONS (2)
  - INCORRECT ROUTE OF DRUG ADMINISTRATION [None]
  - WRONG DRUG ADMINISTERED [None]
